FAERS Safety Report 23562239 (Version 2)
Quarter: 2024Q1

REPORT INFORMATION
  Report Type: Spontaneous
  Country: US (occurrence: US)
  Receive Date: 20240226
  Receipt Date: 20240320
  Transmission Date: 20240409
  Serious: No
  Sender: FDA-Public Use
  Company Number: US-GSKCCFUS-Case-01940625_AE-107855

PATIENT
  Sex: Female

DRUGS (1)
  1. JEMPERLI [Suspect]
     Active Substance: DOSTARLIMAB-GXLY
     Indication: Neoplasm
     Dosage: UNK

REACTIONS (10)
  - Thirst [Unknown]
  - Dry mouth [Unknown]
  - Thyroid disorder [Unknown]
  - Ageusia [Unknown]
  - Anosmia [Unknown]
  - Gingival recession [Unknown]
  - Hyperaesthesia teeth [Unknown]
  - Tooth disorder [Unknown]
  - Weight decreased [Unknown]
  - Off label use [Unknown]
